FAERS Safety Report 4548634-8 (Version None)
Quarter: 2005Q1

REPORT INFORMATION
  Report Type: 
  Country: None (occurrence: None)
  Receive Date: 20050106
  Receipt Date: 20041229
  Transmission Date: 20050727
  Serious: Yes (Hospitalization, Other)
  Sender: FDA-Public Use
  Company Number: KII-2004-0014460

PATIENT
  Age: 45 Year
  Sex: Female

DRUGS (5)
  1. MORPHINE SULFATE [Suspect]
     Dosage: ORAL
     Route: 048
  2. ACE INHIBITOR (NOS) [Suspect]
     Dosage: ORAL
     Route: 048
  3. THIAZIDES (THIAZIDES) [Suspect]
  4. BENZODIAZEPINE DERIATIVES (BENZODIAZEPINE DERIVATIVES) [Suspect]
  5. TETRAHYDROCANNABINOL  (TETRAHYDROCANNABINOL) [Suspect]

REACTIONS (9)
  - DEPRESSED LEVEL OF CONSCIOUSNESS [None]
  - DYSPNOEA [None]
  - HYPOTENSION [None]
  - MEMORY IMPAIRMENT [None]
  - MULTIPLE DRUG OVERDOSE [None]
  - NAUSEA [None]
  - OXYGEN SATURATION DECREASED [None]
  - VISUAL DISTURBANCE [None]
  - VOMITING [None]
